FAERS Safety Report 4521970-7 (Version None)
Quarter: 2004Q4

REPORT INFORMATION
  Report Type: 
  Country: None (occurrence: None)
  Receive Date: 20041206
  Receipt Date: 20041123
  Transmission Date: 20050328
  Serious: Yes (Other)
  Sender: FDA-Public Use
  Company Number: 2004232473US

PATIENT
  Sex: Female

DRUGS (9)
  1. ZYVOX [Suspect]
     Indication: GLYCOPEPTIDE ANTIBIOTIC RESISTANT ENTEROCOCCAL INFECTION
     Dosage: 1200 MG (600 MG, TWICE DAILY), INTRAVENOUS
     Route: 042
     Dates: start: 20040907, end: 20040907
  2. AZTREONAM (AZTREONAM) [Concomitant]
  3. VANCOMYCIN [Concomitant]
  4. METRONIDAZOLE [Concomitant]
  5. HEPARIN-FRACTION, SODIUM SALT (HEPARIN-FRACTION, SODIUM SALT) [Concomitant]
  6. METHYLPREDNISOLONE [Concomitant]
  7. INSULIN [Concomitant]
  8. MEBENDAZOLE [Concomitant]
  9. GENTAMICIN [Concomitant]

REACTIONS (4)
  - EMOTIONAL DISTRESS [None]
  - ERYTHEMA [None]
  - FEELING HOT [None]
  - HYPERSENSITIVITY [None]
